FAERS Safety Report 26019684 (Version 1)
Quarter: 2025Q4

REPORT INFORMATION
  Report Type: Spontaneous
  Country: EU (occurrence: EU)
  Receive Date: 20251110
  Receipt Date: 20251110
  Transmission Date: 20260117
  Serious: Yes (Other)
  Sender: PFIZER
  Company Number: EU-PFIZER INC-202500219202

PATIENT
  Age: 66 Year
  Sex: Male

DRUGS (14)
  1. METHOTREXATE SODIUM [Suspect]
     Active Substance: METHOTREXATE SODIUM
     Indication: Polymyalgia rheumatica
     Dosage: 15 MG, WEEKLY
  2. NIVOLUMAB\RELATLIMAB [Suspect]
     Active Substance: NIVOLUMAB\RELATLIMAB
     Indication: Acral lentiginous melanoma stage IV
     Dosage: UNK (NIVOLUMAB 480 MG/ RELATLIMAB 160 MG)
     Dates: start: 202303, end: 202407
  3. NIVOLUMAB\RELATLIMAB [Suspect]
     Active Substance: NIVOLUMAB\RELATLIMAB
     Dosage: UNK (NIVOLUMAB 480 MG/ RELATLIMAB 160 MG)
     Dates: start: 202408, end: 202510
  4. TOCILIZUMAB [Suspect]
     Active Substance: TOCILIZUMAB
     Indication: Acral lentiginous melanoma stage IV
     Dosage: 8 MG/KG (4 WEEK, 3 CYCLES)
     Dates: start: 202303, end: 202305
  5. TOCILIZUMAB [Suspect]
     Active Substance: TOCILIZUMAB
     Dosage: 162 MG, WEEKLY
     Route: 058
  6. TOCILIZUMAB [Suspect]
     Active Substance: TOCILIZUMAB
     Dosage: UNK
     Dates: start: 202408, end: 202510
  7. BISOPROLOL [Concomitant]
     Active Substance: BISOPROLOL
     Dosage: UNK
  8. CANDESARTAN [Concomitant]
     Active Substance: CANDESARTAN
     Dosage: UNK
  9. HYDROCHLOROTHIAZIDE [Concomitant]
     Active Substance: HYDROCHLOROTHIAZIDE
     Dosage: UNK
  10. ASPIRIN [Concomitant]
     Active Substance: ASPIRIN
     Dosage: UNK
  11. METFORMIN [Concomitant]
     Active Substance: METFORMIN HYDROCHLORIDE
     Dosage: UNK
  12. ATORVASTATIN [Concomitant]
     Active Substance: ATORVASTATIN
     Dosage: UNK
  13. EZETIMIBE [Concomitant]
     Active Substance: EZETIMIBE
     Dosage: UNK
  14. PRASUGREL [Concomitant]
     Active Substance: PRASUGREL
     Dosage: UNK

REACTIONS (4)
  - Immune-mediated myositis [Recovered/Resolved]
  - Hepatotoxicity [Recovered/Resolved]
  - Pain [Unknown]
  - Off label use [Unknown]

NARRATIVE: CASE EVENT DATE: 20240701
